FAERS Safety Report 12047983 (Version 1)
Quarter: 2016Q1

REPORT INFORMATION
  Report Type: Spontaneous
  Country: None (occurrence: None)
  Receive Date: 20160208
  Receipt Date: 20160208
  Transmission Date: 20160526
  Serious: Yes (Hospitalization, Other)
  Sender: FDA-Public Use
  Company Number: None

PATIENT
  Age: 22 Year
  Sex: Female
  Weight: 79.38 kg

DRUGS (1)
  1. EQUATE TIOCONAZOLE 1 DAY [Suspect]
     Active Substance: TIOCONAZOLE
     Indication: FUNGAL INFECTION
     Dates: start: 20160203, end: 20160206

REACTIONS (2)
  - Genital ulceration [None]
  - Genital blister [None]

NARRATIVE: CASE EVENT DATE: 20160203
